FAERS Safety Report 9385330 (Version 2)
Quarter: 2014Q2

REPORT INFORMATION
  Report Type: Spontaneous
  Country: CA (occurrence: CA)
  Receive Date: 20130705
  Receipt Date: 20140508
  Transmission Date: 20141212
  Serious: Yes (Hospitalization)
  Sender: FDA-Public Use
  Company Number: CA-GLAXOSMITHKLINE-A1029828A

PATIENT
  Sex: Female
  Weight: 90.9 kg

DRUGS (13)
  1. FLOLAN [Suspect]
     Indication: PULMONARY ARTERIAL HYPERTENSION
     Dosage: 3MGD CONTINUOUS
     Route: 042
     Dates: start: 20060315
  2. FLOLAN DILUENT [Suspect]
     Indication: PULMONARY ARTERIAL HYPERTENSION
     Route: 042
     Dates: start: 20060315
  3. PALAFER [Concomitant]
  4. VIAGRA [Concomitant]
  5. CYCLOBENZAPRINE [Concomitant]
  6. ATIVAN [Concomitant]
  7. PANTOPRAZOLE [Concomitant]
  8. CODEINE [Concomitant]
  9. LASIX [Concomitant]
  10. CITALOPRAM [Concomitant]
  11. WARFARIN [Concomitant]
  12. SENNOSIDE [Concomitant]
  13. LACTULOSE [Concomitant]

REACTIONS (7)
  - Device breakage [Unknown]
  - Pneumonia [Unknown]
  - Dyspnoea [Unknown]
  - Chest discomfort [Unknown]
  - Oral candidiasis [Unknown]
  - Lung disorder [Unknown]
  - Activities of daily living impaired [Unknown]
